FAERS Safety Report 9778368 (Version 1)
Quarter: 2013Q4

REPORT INFORMATION
  Report Type: Spontaneous
  Country: JP (occurrence: JP)
  Receive Date: 20131223
  Receipt Date: 20131223
  Transmission Date: 20140711
  Serious: Yes (Death)
  Sender: FDA-Public Use
  Company Number: JP-BRACCO-007641

PATIENT
  Age: 75 Year
  Sex: Female

DRUGS (1)
  1. IOPAMIRON [Suspect]
     Indication: COMPUTERISED TOMOGRAM
     Route: 042
     Dates: start: 20131115, end: 20131115

REACTIONS (5)
  - Multi-organ failure [Fatal]
  - Nausea [Fatal]
  - Vomiting [Fatal]
  - Blood pressure decreased [Fatal]
  - Bradycardia [Fatal]
